FAERS Safety Report 14680851 (Version 1)
Quarter: 2018Q1

REPORT INFORMATION
  Report Type: Spontaneous
  Country: BR (occurrence: BR)
  Receive Date: 20180326
  Receipt Date: 20180326
  Transmission Date: 20180509
  Serious: Yes (Death, Other)
  Sender: FDA-Public Use
  Company Number: BR-JNJFOC-20180328842

PATIENT

DRUGS (1)
  1. DARATUMUMAB [Suspect]
     Active Substance: DARATUMUMAB
     Indication: PLASMA CELL MYELOMA

REACTIONS (3)
  - Bronchospasm [Not Recovered/Not Resolved]
  - Central nervous system haemorrhage [Fatal]
  - Hypertension [Not Recovered/Not Resolved]
